FAERS Safety Report 4907207-5 (Version None)
Quarter: 2006Q1

REPORT INFORMATION
  Report Type: 
  Country: None (occurrence: None)
  Receive Date: 20060207
  Receipt Date: 20060119
  Transmission Date: 20060701
  Serious: Yes (Hospitalization, Other)
  Sender: FDA-Public Use
  Company Number: US200601003115

PATIENT
  Age: 79 Year
  Sex: Female
  Weight: 56.7 kg

DRUGS (2)
  1. FORTEO [Suspect]
     Indication: FRACTURE
     Dates: start: 20050101
  2. FORTEO [Concomitant]

REACTIONS (4)
  - FALL [None]
  - NAUSEA [None]
  - PELVIC FRACTURE [None]
  - VOMITING [None]
